FAERS Safety Report 11318653 (Version 4)
Quarter: 2016Q1

REPORT INFORMATION
  Report Type: Report from Study
  Country: PL (occurrence: PL)
  Receive Date: 20150729
  Receipt Date: 20160216
  Transmission Date: 20160525
  Serious: Yes (Life-Threatening, Hospitalization)
  Sender: FDA-Public Use
  Company Number: PL-ROCHE-1612785

PATIENT
  Age: 65 Year
  Sex: Female
  Weight: 120 kg

DRUGS (7)
  1. FOLIC ACID. [Concomitant]
     Active Substance: FOLIC ACID
     Indication: RHEUMATOID ARTHRITIS
     Route: 048
     Dates: start: 20120216
  2. TOCILIZUMAB [Suspect]
     Active Substance: TOCILIZUMAB
     Indication: RHEUMATOID ARTHRITIS
     Route: 042
     Dates: start: 20150525
  3. TOCILIZUMAB [Suspect]
     Active Substance: TOCILIZUMAB
     Route: 042
     Dates: start: 20150622
  4. AXTIL [Concomitant]
     Route: 048
  5. METHOTREXATE [Concomitant]
     Active Substance: METHOTREXATE
     Indication: RHEUMATOID ARTHRITIS
     Route: 058
     Dates: start: 20120216
  6. METHOTREXATE [Concomitant]
     Active Substance: METHOTREXATE
     Route: 058
     Dates: start: 20120416
  7. AMLOPIN [Concomitant]
     Active Substance: AMLODIPINE BESYLATE
     Route: 065

REACTIONS (1)
  - Myocardial infarction [Recovered/Resolved with Sequelae]

NARRATIVE: CASE EVENT DATE: 20150707
